FAERS Safety Report 25216016 (Version 3)
Quarter: 2025Q2

REPORT INFORMATION
  Report Type: Report from Study
  Country: PH (occurrence: PH)
  Receive Date: 20250418
  Receipt Date: 20250606
  Transmission Date: 20250716
  Serious: Yes (Hospitalization)
  Sender: ROCHE
  Company Number: PH-ROCHE-10000252737

PATIENT
  Age: 86 Year
  Sex: Male
  Weight: 51.5 kg

DRUGS (3)
  1. TECENTRIQ [Suspect]
     Active Substance: ATEZOLIZUMAB
     Indication: Hepatocellular carcinoma
     Dosage: DOSAGE INFORMATION TECENTRIQ 1200MG 1VIAL
     Route: 042
     Dates: start: 202407, end: 202504
  2. AVASTIN [Suspect]
     Active Substance: BEVACIZUMAB
     Indication: Hepatocellular carcinoma
     Dosage: DOSAGE INFORMATION AVASTIN 400MG/ 1 VIAL
     Route: 042
     Dates: start: 202407, end: 202504
  3. AVASTIN [Suspect]
     Active Substance: BEVACIZUMAB
     Dosage: DOSAGE INFORMATION AVASTIN 100MG/ 2 VIALS
     Route: 042

REACTIONS (8)
  - Varicose vein [Unknown]
  - Blood test abnormal [Unknown]
  - Gait inability [Unknown]
  - Haematochezia [Unknown]
  - Abdominal pain upper [Unknown]
  - Ulcer [Recovered/Resolved]
  - Haemorrhage [Recovered/Resolved]
  - Haematochezia [Not Recovered/Not Resolved]

NARRATIVE: CASE EVENT DATE: 20250101
